FAERS Safety Report 24692231 (Version 1)
Quarter: 2024Q4

REPORT INFORMATION
  Report Type: Spontaneous
  Country: US (occurrence: US)
  Receive Date: 20241203
  Receipt Date: 20241203
  Transmission Date: 20250115
  Serious: Yes (Life-Threatening, Hospitalization, Other)
  Sender: BRISTOL-MYERS SQUIBB COMPANY
  Company Number: US-BRISTOL-MYERS SQUIBB COMPANY-2024-182776

PATIENT
  Age: 66 Year
  Sex: Male

DRUGS (1)
  1. REVLIMID [Suspect]
     Active Substance: LENALIDOMIDE
     Indication: Plasma cell myeloma
     Dosage: TAKE 1 CAPSULE BY MOUTH EVERY DAY ON DAYS 1-21 OF EACH 28 DAY CYCLE
     Route: 048

REACTIONS (7)
  - Weight decreased [Recovering/Resolving]
  - Pulmonary embolism [Not Recovered/Not Resolved]
  - Psychotic disorder [Recovered/Resolved]
  - Blood magnesium decreased [Not Recovered/Not Resolved]
  - Hypophagia [Recovering/Resolving]
  - Thrombosis [Not Recovered/Not Resolved]
  - Coma [Unknown]
